FAERS Safety Report 9210363 (Version 2)
Quarter: 2013Q2

REPORT INFORMATION
  Report Type: Spontaneous
  Country: IT (occurrence: IT)
  Receive Date: 20130404
  Receipt Date: 20130411
  Transmission Date: 20140414
  Serious: Yes (Other)
  Sender: FDA-Public Use
  Company Number: IT-ASTRAZENECA-2013SE21044

PATIENT
  Age: 53 Year
  Sex: Female

DRUGS (5)
  1. NEXIUM [Suspect]
     Indication: HIATUS HERNIA
     Route: 048
  2. NEXIUM [Suspect]
     Indication: OESOPHAGITIS
     Route: 048
  3. DIBASE [Concomitant]
     Dosage: 300.000 IU/ML, 2 DF
     Route: 048
  4. VANTAVO (ALENDRONIC ACID/CHOLECALCIFEROL) [Concomitant]
     Dosage: 70 MG/5600 IU TABLETS, 1 DF
     Route: 048
  5. CORISONICS [Concomitant]

REACTIONS (2)
  - Carcinoid syndrome [Not Recovered/Not Resolved]
  - Blood chromogranin A increased [Not Recovered/Not Resolved]
